FAERS Safety Report 5463719-X (Version None)
Quarter: 2007Q3

REPORT INFORMATION
  Report Type: 
  Country: None (occurrence: None)
  Receive Date: 20070920
  Receipt Date: 20070907
  Transmission Date: 20080115
  Serious: No
  Sender: FDA-Public Use
  Company Number: US-BOEHRINGER INGELHEIM PHARMACEUTICALS, INC.-2007-BP-18963BP

PATIENT
  Sex: Male
  Weight: 82 kg

DRUGS (7)
  1. CLONIDINE HCL [Suspect]
     Indication: HYPERTENSION
     Route: 048
     Dates: start: 20020101
  2. ALTACE [Concomitant]
     Dates: start: 20020301
  3. AVALIDE [Concomitant]
     Dates: start: 20020301
  4. TRIAMTERENE [Concomitant]
     Dates: start: 20020301
  5. HYDRALAZINE HCL [Concomitant]
     Indication: HYPERTENSION
     Route: 048
     Dates: start: 20020301
  6. TENEX [Concomitant]
     Dates: start: 20020301
  7. TEKTURNA [Concomitant]

REACTIONS (2)
  - HYPERTENSION [None]
  - RENAL IMPAIRMENT [None]
